FAERS Safety Report 6944693-3 (Version None)
Quarter: 2010Q3

REPORT INFORMATION
  Report Type: 
  Country: None (occurrence: None)
  Receive Date: 20100827
  Receipt Date: 20100825
  Transmission Date: 20110219
  Serious: Yes (Life-Threatening, Hospitalization)
  Sender: FDA-Public Use
  Company Number: JP-BAYER-201013294BYL

PATIENT
  Age: 63 Year
  Sex: Female
  Weight: 54 kg

DRUGS (2)
  1. NEXAVAR [Suspect]
     Indication: RENAL CANCER
     Dosage: TOTAL DAILY DOSE: 800 MG  UNIT DOSE: 200 MG
     Route: 048
     Dates: start: 20100614, end: 20100626
  2. LOXOPROFEN [Concomitant]
     Indication: ANALGESIC THERAPY
     Route: 048
     Dates: start: 20100301

REACTIONS (2)
  - INTERSTITIAL LUNG DISEASE [None]
  - STEVENS-JOHNSON SYNDROME [None]
